FAERS Safety Report 10262809 (Version 2)
Quarter: 2014Q2

REPORT INFORMATION
  Report Type: Report from Study
  Country: US (occurrence: US)
  Receive Date: 20140626
  Receipt Date: 20140626
  Transmission Date: 20141212
  Serious: Yes (Life-Threatening, Hospitalization, Other)
  Sender: FDA-Public Use
  Company Number: US-MYLANLABS-2013S1017415

PATIENT
  Age: 35 Year
  Sex: Male
  Weight: 112.95 kg

DRUGS (8)
  1. CLOZAPINE TABLETS [Suspect]
     Indication: SCHIZOPHRENIA
     Route: 048
     Dates: start: 20130426, end: 20130729
  2. CLOZAPINE TABLETS [Suspect]
     Indication: SCHIZOPHRENIA
     Route: 048
     Dates: start: 20130426, end: 20130729
  3. GEODON [Concomitant]
  4. SERTRALINE [Concomitant]
  5. TRAZODONE [Concomitant]
     Dosage: 50MG TO 100MG
  6. BENZATROPINE [Concomitant]
  7. CLONAZEPAM [Concomitant]
  8. FLUPHENAZINE [Concomitant]
     Route: 030

REACTIONS (4)
  - Agranulocytosis [Recovered/Resolved]
  - Granulocytopenia [Recovered/Resolved]
  - Leukopenia [Recovered/Resolved]
  - Febrile neutropenia [Recovered/Resolved]
